FAERS Safety Report 16900066 (Version 1)
Quarter: 2019Q4

REPORT INFORMATION
  Report Type: Spontaneous
  Country: US (occurrence: US)
  Receive Date: 20190816
  Receipt Date: 20190816
  Transmission Date: 20200122
  Serious: Yes (Hospitalization)
  Sender: FDA-Public Use
  Company Number: None

PATIENT
  Age: 37 Year
  Sex: Male
  Weight: 65.9 kg

DRUGS (1)
  1. YESCARTA [Suspect]
     Active Substance: AXICABTAGENE CILOLEUCEL
     Indication: LYMPHOMA
     Route: 042

REACTIONS (4)
  - CAR T-cell-related encephalopathy syndrome [None]
  - Cytokine release syndrome [None]
  - Hypotension [None]
  - Neurotoxicity [None]

NARRATIVE: CASE EVENT DATE: 20190616
